FAERS Safety Report 9669890 (Version 2)
Quarter: 2013Q4

REPORT INFORMATION
  Report Type: Spontaneous
  Country: US (occurrence: None)
  Receive Date: 20131104
  Receipt Date: 20131113
  Transmission Date: 20140711
  Serious: Yes (Hospitalization)
  Sender: FDA-Public Use
  Company Number: AUR-APL-2013-08977

PATIENT
  Age: 75 Year
  Sex: Male

DRUGS (1)
  1. FLUCONAZOLE [Suspect]
     Indication: ANTIFUNGAL PROPHYLAXIS

REACTIONS (3)
  - Torsade de pointes [None]
  - Hypokalaemia [None]
  - Hypomagnesaemia [None]
